FAERS Safety Report 23309108 (Version 1)
Quarter: 2023Q4

REPORT INFORMATION
  Report Type: Spontaneous
  Country: UA (occurrence: UA)
  Receive Date: 20231218
  Receipt Date: 20231218
  Transmission Date: 20240110
  Serious: Yes (Death)
  Sender: FDA-Public Use
  Company Number: UA-MYLANLABS-2023M1133037

PATIENT
  Age: 23 Year
  Sex: Male

DRUGS (4)
  1. PRETOMANID [Suspect]
     Active Substance: PRETOMANID
     Indication: Tuberculosis
     Dosage: 0.2 GRAM, QD
     Route: 048
     Dates: start: 20231117, end: 20231122
  2. BEDAQUILINE [Suspect]
     Active Substance: BEDAQUILINE
     Indication: Tuberculosis
     Dosage: 0.2 GRAM, 3XW
     Route: 048
     Dates: start: 20231117, end: 20231122
  3. FLOXSAFE [Concomitant]
     Dosage: 0.4 GRAM, QD
     Route: 065
     Dates: start: 20231117, end: 20231122
  4. Nezolid [Concomitant]
     Dosage: 0.6 GRAM, QD
     Route: 065
     Dates: start: 20231117, end: 20231122

REACTIONS (1)
  - Death [Fatal]

NARRATIVE: CASE EVENT DATE: 20231122
